FAERS Safety Report 6016515-9 (Version None)
Quarter: 2008Q4

REPORT INFORMATION
  Report Type: 
  Country: None (occurrence: None)
  Receive Date: 20081218
  Receipt Date: 20081211
  Transmission Date: 20090506
  Serious: Yes (Hospitalization)
  Sender: FDA-Public Use
  Company Number: WAES 0811FRA00029

PATIENT
  Age: 67 Year
  Sex: Male

DRUGS (19)
  1. CAP VORINOSTAT [Suspect]
     Indication: NON-SMALL CELL LUNG CANCER
     Dosage: 400 MG/DAILY
     Route: 048
     Dates: start: 20081104, end: 20081113
  2. CAP VORINOSTAT [Suspect]
     Indication: NON-SMALL CELL LUNG CANCER
     Dosage: 400 MG/DAILY
     Route: 048
     Dates: start: 20081209, end: 20081211
  3. GEMCITABINE [Suspect]
     Indication: NON-SMALL CELL LUNG CANCER
     Dosage: 1250 MG/M2/D 75 MG/M2/D
     Route: 042
     Dates: start: 20081023, end: 20081023
  4. GEMCITABINE [Suspect]
     Indication: NON-SMALL CELL LUNG CANCER
     Dosage: 1250 MG/M2/D 75 MG/M2/D
     Route: 042
     Dates: start: 20081106, end: 20081106
  5. GEMCITABINE [Suspect]
     Indication: NON-SMALL CELL LUNG CANCER
     Dosage: 1250 MG/M2/D 75 MG/M2/D
     Route: 042
     Dates: start: 20081113, end: 20081113
  6. GEMCITABINE [Suspect]
     Indication: NON-SMALL CELL LUNG CANCER
     Dosage: 1250 MG/M2/D 75 MG/M2/D
     Route: 042
     Dates: start: 20081016, end: 20081211
  7. CISPLATIN [Suspect]
     Indication: NON-SMALL CELL LUNG CANCER
     Dosage: 75 MG/M2/D
     Route: 042
     Dates: start: 20081016, end: 20081016
  8. CISPLATIN [Suspect]
     Indication: NON-SMALL CELL LUNG CANCER
     Dosage: 75 MG/M2/D
     Route: 042
     Dates: start: 20081106, end: 20081106
  9. APREPITANT [Concomitant]
  10. BROMAZEPAM [Concomitant]
  11. CLONAZEPAM [Concomitant]
  12. FENTANYL-100 [Concomitant]
  13. FLUVASTATIN SODIUM [Concomitant]
  14. FONDAPARINUX SODIUM [Concomitant]
  15. MORPHINE SULFATE [Concomitant]
  16. ONDANSETRON HCL [Concomitant]
  17. ORNITHINE KETOGLUTARATE [Concomitant]
  18. POLYETHYLENE GLYCOL 4000 [Concomitant]
  19. PREDNISONE TAB [Concomitant]

REACTIONS (11)
  - ABDOMINAL PAIN UPPER [None]
  - ASTHENIA [None]
  - BRONCHOPNEUMONIA [None]
  - CONFUSIONAL STATE [None]
  - GENERAL PHYSICAL HEALTH DETERIORATION [None]
  - HAEMOGLOBIN DECREASED [None]
  - HYPERTHERMIA [None]
  - JUGULAR VEIN THROMBOSIS [None]
  - NEUTROPENIA [None]
  - PHLEBITIS [None]
  - THROMBOCYTOPENIA [None]
